FAERS Safety Report 25814216 (Version 1)
Quarter: 2025Q3

REPORT INFORMATION
  Report Type: Report from Study
  Country: US (occurrence: US)
  Receive Date: 20250917
  Receipt Date: 20250917
  Transmission Date: 20251021
  Serious: Yes (Other)
  Sender: TAKEDA
  Company Number: US-TAKEDA-2025TUS073774

PATIENT
  Sex: Female

DRUGS (1)
  1. FRUQUINTINIB [Suspect]
     Active Substance: FRUQUINTINIB
     Indication: Colon cancer

REACTIONS (6)
  - Ascites [Unknown]
  - Brain fog [Unknown]
  - Flushing [Unknown]
  - Fatigue [Unknown]
  - Dysphonia [Unknown]
  - Blood pressure increased [Unknown]
